FAERS Safety Report 25497194 (Version 3)
Quarter: 2025Q3

REPORT INFORMATION
  Report Type: Spontaneous
  Country: EU (occurrence: EU)
  Receive Date: 20250701
  Receipt Date: 20250829
  Transmission Date: 20251021
  Serious: Yes (Other)
  Sender: AMGEN
  Company Number: EU-AMGEN-DEUSP2025124510

PATIENT
  Age: 69 Year
  Sex: Female

DRUGS (2)
  1. PROLIA [Suspect]
     Active Substance: DENOSUMAB
     Indication: Product used for unknown indication
     Route: 065
     Dates: start: 20240424
  2. PROLIA [Suspect]
     Active Substance: DENOSUMAB
     Route: 065
     Dates: start: 20241016

REACTIONS (42)
  - Suicidal ideation [Unknown]
  - Osteonecrosis of jaw [Unknown]
  - Deafness [Unknown]
  - Peripheral swelling [Unknown]
  - Chills [Unknown]
  - Mobility decreased [Unknown]
  - Sleep disorder due to a general medical condition [Unknown]
  - Ear pain [Unknown]
  - Micturition urgency [Unknown]
  - Faeces soft [Unknown]
  - Vision blurred [Unknown]
  - Bone density decreased [Unknown]
  - Periodontitis [Unknown]
  - Neck pain [Unknown]
  - Hypoaesthesia [Unknown]
  - Joint swelling [Unknown]
  - Weight decreased [Unknown]
  - Paraesthesia [Unknown]
  - Arthralgia [Unknown]
  - Dizziness [Unknown]
  - Feeling cold [Unknown]
  - Urticaria [Unknown]
  - Alopecia [Unknown]
  - Pain in extremity [Unknown]
  - Abdominal discomfort [Unknown]
  - Dyspepsia [Unknown]
  - Vertigo [Unknown]
  - Fatigue [Unknown]
  - Anxiety [Unknown]
  - Musculoskeletal stiffness [Unknown]
  - Angular cheilitis [Unknown]
  - Varicose vein [Unknown]
  - Impaired quality of life [Unknown]
  - Headache [Unknown]
  - Muscle spasms [Unknown]
  - Stress [Unknown]
  - Hypersensitivity [Unknown]
  - Rebound effect [Unknown]
  - Gastrointestinal motility disorder [Unknown]
  - Bladder discomfort [Unknown]
  - Bradykinesia [Unknown]
  - Muscle tightness [Unknown]

NARRATIVE: CASE EVENT DATE: 20241027
